FAERS Safety Report 7324471-6 (Version None)
Quarter: 2011Q1

REPORT INFORMATION
  Report Type: 
  Country: None (occurrence: None)
  Receive Date: 20110203
  Receipt Date: 20101018
  Transmission Date: 20110831
  Serious: Yes (Hospitalization)
  Sender: FDA-Public Use
  Company Number: 019917

PATIENT
  Sex: Male
  Weight: 72.6 kg

DRUGS (4)
  1. ARICEPT [Concomitant]
  2. KEPPRA [Suspect]
     Indication: CONVULSION
     Dosage: (500 MG BID ORAL)
     Route: 048
     Dates: start: 20100813, end: 20100815
  3. SIMVASTATIN [Concomitant]
  4. PLAVIX [Concomitant]

REACTIONS (1)
  - DIARRHOEA [None]
